FAERS Safety Report 8556116-1 (Version None)
Quarter: 2012Q3

REPORT INFORMATION
  Report Type: 
  Country: None (occurrence: None)
  Receive Date: 20120801
  Receipt Date: 20110923
  Transmission Date: 20120928
  Serious: Yes (Death, Hospitalization)
  Sender: FDA-Public Use
  Company Number: US-BAYER-200920703NA

PATIENT
  Age: 25 Year
  Sex: Female
  Weight: 68 kg

DRUGS (3)
  1. ANTITHROMBOTIC AGENTS [Concomitant]
  2. YAZ [Suspect]
     Indication: ORAL CONTRACEPTION
     Dates: start: 20060425, end: 20060522
  3. YAZ [Suspect]
     Indication: PREMENSTRUAL SYNDROME

REACTIONS (6)
  - SYNCOPE [None]
  - APHASIA [None]
  - HEMIPARESIS [None]
  - CONVULSION [None]
  - THROMBOTIC CEREBRAL INFARCTION [None]
  - FALL [None]
